FAERS Safety Report 20547332 (Version 2)
Quarter: 2023Q1

REPORT INFORMATION
  Report Type: Spontaneous
  Country: US (occurrence: US)
  Receive Date: 20220303
  Receipt Date: 20230313
  Transmission Date: 20230418
  Serious: Yes (Disabling, Other)
  Sender: FDA-Public Use
  Company Number: US-ORGANON-O2203USA000154

PATIENT
  Sex: Female

DRUGS (1)
  1. SINGULAIR [Suspect]
     Active Substance: MONTELUKAST SODIUM
     Indication: Asthma
     Dosage: 10 MILLIGRAM
     Route: 048
     Dates: start: 1998

REACTIONS (14)
  - Neuropsychiatric symptoms [Not Recovered/Not Resolved]
  - Anxiety [Not Recovered/Not Resolved]
  - Dysphemia [Not Recovered/Not Resolved]
  - Tremor [Not Recovered/Not Resolved]
  - Depression [Not Recovered/Not Resolved]
  - Surgery [Unknown]
  - Sjogren^s syndrome [Unknown]
  - Ankylosing spondylitis [Unknown]
  - Insomnia [Unknown]
  - Tic [Unknown]
  - Migraine [Unknown]
  - Road traffic accident [Unknown]
  - Back pain [Unknown]
  - Neck pain [Unknown]

NARRATIVE: CASE EVENT DATE: 19980101
